FAERS Safety Report 6203726-2 (Version None)
Quarter: 2009Q2

REPORT INFORMATION
  Report Type: 
  Country: None (occurrence: None)
  Receive Date: 20090526
  Receipt Date: 20090526
  Transmission Date: 20091009
  Serious: Yes (Other)
  Sender: FDA-Public Use
  Company Number: None

PATIENT
  Age: 50 Year
  Sex: Male

DRUGS (4)
  1. BUMETANIDE [Suspect]
     Indication: OEDEMA
     Dosage: 1-2MG PER HOUR CONTINUOUS IV DRIP
     Route: 041
     Dates: start: 20090419, end: 20090421
  2. BUMETANIDE [Suspect]
     Indication: PULMONARY OEDEMA
     Dosage: 1-2MG PER HOUR CONTINUOUS IV DRIP
     Route: 041
     Dates: start: 20090419, end: 20090421
  3. BUMETANIDE [Suspect]
     Indication: OEDEMA
     Dosage: 1-2MG PER HOUR CONTINUOUS IV DRIP
     Route: 041
     Dates: start: 20090518, end: 20090519
  4. BUMETANIDE [Suspect]
     Indication: PULMONARY OEDEMA
     Dosage: 1-2MG PER HOUR CONTINUOUS IV DRIP
     Route: 041
     Dates: start: 20090518, end: 20090519

REACTIONS (2)
  - BLOOD POTASSIUM DECREASED [None]
  - MYALGIA [None]
